FAERS Safety Report 4978137-8 (Version None)
Quarter: 2006Q2

REPORT INFORMATION
  Report Type: 
  Country: None (occurrence: None)
  Receive Date: 20060417
  Receipt Date: 20060410
  Transmission Date: 20061013
  Serious: Yes (Death)
  Sender: FDA-Public Use
  Company Number: 2006S1002485

PATIENT
  Age: 78 Year
  Sex: Female
  Weight: 54.4316 kg

DRUGS (18)
  1. DURAGESIC-100 [Suspect]
     Indication: BACK PAIN
     Dosage: 100 UG/HR; Q3D; TRANS
     Route: 062
     Dates: start: 20000101, end: 20060201
  2. DURAGESIC-100 [Suspect]
     Indication: RHEUMATOID ARTHRITIS
     Dosage: 100 UG/HR; Q3D; TRANS
     Route: 062
     Dates: start: 20000101, end: 20060201
  3. FENTANYL TRANSDERMAL SYSTEM [Suspect]
     Indication: BACK PAIN
     Dosage: 100 UG/HR; Q3D; TRANS
     Route: 062
     Dates: start: 20060201, end: 20060220
  4. FENTANYL TRANSDERMAL SYSTEM [Suspect]
     Indication: RHEUMATOID ARTHRITIS
     Dosage: 100 UG/HR; Q3D; TRANS
     Route: 062
     Dates: start: 20060201, end: 20060220
  5. FENTANYL TRANSDERMAL SYSTEM [Suspect]
     Indication: BACK PAIN
     Dosage: 75 UG/HR; X1; TRANS
     Route: 062
     Dates: start: 20060220, end: 20060221
  6. FENTANYL TRANSDERMAL SYSTEM [Suspect]
     Indication: RHEUMATOID ARTHRITIS
     Dosage: 75 UG/HR; X1; TRANS
     Route: 062
     Dates: start: 20060220, end: 20060221
  7. TRAMADOL HCL [Concomitant]
  8. FERROUS SULFATE TAB [Concomitant]
  9. DIGOXIN [Concomitant]
  10. LEVOTHYROXINE SODIUM [Concomitant]
  11. PANTOPRAZOLE [Concomitant]
  12. POTASSIUM CHLORIDE [Concomitant]
  13. VENLAFAXINE HCL [Concomitant]
  14. TEGASEROD [Concomitant]
  15. MACROGOL [Concomitant]
  16. MIRTAZAPINE [Concomitant]
  17. DOCUSATE SODIUM [Concomitant]
  18. MEGESTROL [Concomitant]

REACTIONS (19)
  - ABDOMINAL PAIN UPPER [None]
  - ACUTE MYOCARDIAL INFARCTION [None]
  - ANAEMIA [None]
  - ANOREXIA [None]
  - ATRIAL FIBRILLATION [None]
  - BACK PAIN [None]
  - CARDIAC FAILURE CONGESTIVE [None]
  - CHRONIC OBSTRUCTIVE PULMONARY DISEASE [None]
  - CORONARY ARTERY DISEASE [None]
  - DRUG ADMINISTRATION ERROR [None]
  - INTRACARDIAC THROMBUS [None]
  - JOINT STIFFNESS [None]
  - LETHARGY [None]
  - OVERDOSE [None]
  - PULMONARY EMBOLISM [None]
  - RESPIRATION ABNORMAL [None]
  - RESPIRATORY RATE DECREASED [None]
  - SOMNOLENCE [None]
  - THROMBOSIS [None]
